FAERS Safety Report 5068885-6 (Version None)
Quarter: 2006Q3

REPORT INFORMATION
  Report Type: 
  Country: None (occurrence: None)
  Receive Date: 20060802
  Receipt Date: 20060519
  Transmission Date: 20061208
  Serious: No
  Sender: FDA-Public Use
  Company Number: US-BRISTOL-MYERS SQUIBB COMPANY-13382627

PATIENT
  Age: 84 Year
  Sex: Male
  Weight: 84 kg

DRUGS (2)
  1. COUMADIN [Suspect]
     Indication: PULMONARY THROMBOSIS
     Route: 048
     Dates: start: 20060130
  2. KEFLEX [Concomitant]
     Dates: start: 20060201

REACTIONS (1)
  - ALOPECIA [None]
